FAERS Safety Report 9240210 (Version 1)
Quarter: 2013Q1

REPORT INFORMATION
  Report Type: Spontaneous
  Country: US (occurrence: None)
  Receive Date: 20121105
  Receipt Date: 20121105
  Transmission Date: 20140127
  Serious: Yes (Other)
  Sender: FDA-Public Use
  Company Number: 352716USA

PATIENT
  Sex: Female

DRUGS (1)
  1. JOLESSA [Suspect]
     Indication: CONTRACEPTION

REACTIONS (1)
  - Pulmonary embolism [None]
